FAERS Safety Report 5338545-2 (Version None)
Quarter: 2007Q2

REPORT INFORMATION
  Report Type: 
  Country: None (occurrence: None)
  Receive Date: 20070322
  Receipt Date: 20060417
  Transmission Date: 20071010
  Serious: Yes (Other)
  Sender: FDA-Public Use
  Company Number: 200610982BCC

PATIENT
  Age: 34 Year
  Sex: Male
  Weight: 97.5234 kg

DRUGS (3)
  1. ALEVE [Suspect]
     Indication: BACK PAIN
     Dosage: 440 MG, IRR, ORAL
     Route: 048
     Dates: end: 20060305
  2. ALEVE [Suspect]
     Indication: NECK PAIN
     Dosage: 440 MG, IRR, ORAL
     Route: 048
     Dates: end: 20060305
  3. PRILOSEC [Concomitant]

REACTIONS (1)
  - HAEMATOCHEZIA [None]
